FAERS Safety Report 10403487 (Version 1)
Quarter: 2014Q3

REPORT INFORMATION
  Report Type: Spontaneous
  Country: US (occurrence: US)
  Receive Date: 20140822
  Receipt Date: 20140822
  Transmission Date: 20150326
  Serious: Yes (Life-Threatening, Other)
  Sender: FDA-Public Use
  Company Number: US-BAXTER-2014BAX049483

PATIENT
  Age: 46 Year
  Sex: Male

DRUGS (6)
  1. PRISMASOL BK0/0/1.2 [Suspect]
     Active Substance: LACTIC ACID\MAGNESIUM CHLORIDE\SODIUM BICARBONATE\SODIUM CHLORIDE
     Indication: RENAL REPLACEMENT THERAPY
  2. PRISMASOL BK0/0/1.2 [Suspect]
     Active Substance: LACTIC ACID\MAGNESIUM CHLORIDE\SODIUM BICARBONATE\SODIUM CHLORIDE
     Indication: RENAL FAILURE ACUTE
     Route: 010
     Dates: start: 20140727, end: 201408
  3. PRISMASATE BGK2/0 [Suspect]
     Active Substance: CHLORIDE ION\DEXTROSE\LACTIC ACID\MAGNESIUM CHLORIDE\POTASSIUM CHLORIDE\SODIUM BICARBONATE\SODIUM CHLORIDE
     Indication: RENAL REPLACEMENT THERAPY
  4. CALCIUM [Suspect]
     Active Substance: CALCIUM
     Indication: PRODUCT USED FOR UNKNOWN INDICATION
     Dosage: 75 ML/HR
     Route: 010
  5. PRISMASATE BGK2/0 [Suspect]
     Active Substance: CHLORIDE ION\DEXTROSE\LACTIC ACID\MAGNESIUM CHLORIDE\POTASSIUM CHLORIDE\SODIUM BICARBONATE\SODIUM CHLORIDE
     Indication: RENAL FAILURE ACUTE
     Route: 010
     Dates: start: 20140727, end: 201408
  6. CITRATE [Suspect]
     Active Substance: CITRIC ACID MONOHYDRATE
     Indication: PRODUCT USED FOR UNKNOWN INDICATION
     Route: 010

REACTIONS (3)
  - Haemorrhage [Not Recovered/Not Resolved]
  - Cardiac arrest [Recovered/Resolved]
  - Thrombosis in device [Unknown]

NARRATIVE: CASE EVENT DATE: 20140806
